FAERS Safety Report 7293818-1 (Version None)
Quarter: 2011Q1

REPORT INFORMATION
  Report Type: 
  Country: None (occurrence: None)
  Receive Date: 20110203
  Receipt Date: 20110128
  Transmission Date: 20110831
  Serious: Yes (Disabling)
  Sender: FDA-Public Use
  Company Number: IDA-00488

PATIENT
  Age: 68 Year
  Sex: Male

DRUGS (2)
  1. REVLIMID [Suspect]
     Indication: MULTIPLE MYELOMA
     Dosage: 25 MG DAILY, 3 WEEKS ON/1 WEEK OFF; ORAL
     Route: 048
     Dates: start: 20101030
  2. INDERAL [Suspect]
     Indication: HYPERTENSION

REACTIONS (3)
  - TREMOR [None]
  - PRURITUS [None]
  - DRUG INTERACTION [None]
